FAERS Safety Report 10214945 (Version 2)
Quarter: 2014Q2

REPORT INFORMATION
  Report Type: Spontaneous
  Country: US (occurrence: US)
  Receive Date: 20140603
  Receipt Date: 20140609
  Transmission Date: 20141212
  Serious: Yes (Hospitalization)
  Sender: FDA-Public Use
  Company Number: US-TEVA-485092USA

PATIENT
  Sex: 0

DRUGS (2)
  1. METHOTREXATE [Suspect]
     Indication: JUVENILE IDIOPATHIC ARTHRITIS
     Dosage: 25MG/1 ML
  2. METHOTREXATE [Suspect]

REACTIONS (6)
  - Hypotension [Unknown]
  - Leukocytosis [Unknown]
  - Pyrexia [Unknown]
  - Nausea [Unknown]
  - Vomiting [Unknown]
  - Product contamination [Unknown]
